FAERS Safety Report 14738887 (Version 1)
Quarter: 2018Q2

REPORT INFORMATION
  Report Type: Spontaneous
  Country: US (occurrence: US)
  Receive Date: 20180409
  Receipt Date: 20180409
  Transmission Date: 20180711
  Serious: No
  Sender: FDA-Public Use
  Company Number: US-BIOGEN-2015BI150827

PATIENT
  Age: 51 Year
  Sex: Female

DRUGS (1)
  1. AVONEX [Suspect]
     Active Substance: INTERFERON BETA-1A
     Indication: MULTIPLE SCLEROSIS
     Route: 030
     Dates: start: 20000601

REACTIONS (5)
  - Feeling abnormal [Unknown]
  - Insomnia [Recovered/Resolved]
  - Influenza like illness [Recovered/Resolved]
  - Injection site pain [Unknown]
  - Scar [Not Recovered/Not Resolved]

NARRATIVE: CASE EVENT DATE: 20151109
